FAERS Safety Report 11473468 (Version 1)
Quarter: 2015Q3

REPORT INFORMATION
  Report Type: Spontaneous
  Country: US (occurrence: None)
  Receive Date: 20150902
  Receipt Date: 20150902
  Transmission Date: 20151125
  Serious: Yes (Hospitalization)
  Sender: FDA-Public Use
  Company Number: 1000072152

PATIENT

DRUGS (1)
  1. CELEXA [Suspect]
     Active Substance: CITALOPRAM HYDROBROMIDE

REACTIONS (3)
  - Depression [None]
  - Suicidal ideation [None]
  - Overdose [None]

NARRATIVE: CASE EVENT DATE: 200903
